FAERS Safety Report 4991062-1 (Version None)
Quarter: 2006Q2

REPORT INFORMATION
  Report Type: 
  Country: None (occurrence: None)
  Receive Date: 20060503
  Receipt Date: 20051026
  Transmission Date: 20061013
  Serious: Yes (Hospitalization)
  Sender: FDA-Public Use
  Company Number: US-MERCK-0510USA09439

PATIENT
  Age: 75 Year
  Sex: Male
  Weight: 89 kg

DRUGS (7)
  1. VIOXX [Suspect]
     Indication: ARTHRALGIA
     Route: 048
     Dates: start: 20010425, end: 20010816
  2. CLARITIN [Concomitant]
     Indication: HYPERSENSITIVITY
     Route: 065
  3. CYANOCOBALAMIN [Concomitant]
     Route: 065
  4. CARDIZEM [Concomitant]
     Indication: HYPERTENSION
     Route: 065
     Dates: start: 19990104
  5. PRINIVIL [Concomitant]
     Indication: HYPERTENSION
     Route: 065
     Dates: start: 20000807
  6. ZANTAC [Concomitant]
     Indication: GASTROOESOPHAGEAL REFLUX DISEASE
     Route: 065
  7. VIAGRA [Concomitant]
     Indication: ERECTILE DYSFUNCTION
     Route: 065

REACTIONS (9)
  - BLOOD CHOLESTEROL INCREASED [None]
  - BUNDLE BRANCH BLOCK [None]
  - CARDIAC FAILURE CONGESTIVE [None]
  - CEREBROVASCULAR ACCIDENT [None]
  - CHEST PAIN [None]
  - CHRONIC OBSTRUCTIVE PULMONARY DISEASE [None]
  - EXTRASYSTOLES [None]
  - HAEMOPTYSIS [None]
  - MYOCARDIAL INFARCTION [None]
